FAERS Safety Report 19957389 (Version 4)
Quarter: 2022Q2

REPORT INFORMATION
  Report Type: Other
  Country: DE (occurrence: None)
  Receive Date: 20211014
  Receipt Date: 20220426
  Transmission Date: 20220720
  Serious: No
  Sender: FDA-Public Use
  Company Number: DE-ROCHE-2932681

PATIENT
  Age: 46 Year
  Sex: Female

DRUGS (5)
  1. OCREVUS [Suspect]
     Active Substance: OCRELIZUMAB
     Indication: Relapsing-remitting multiple sclerosis
     Dosage: 600MG IN 211 DAYS, SECOND INITIAL DOSE ON 06/JUL/2021
     Route: 042
     Dates: start: 20210622
  2. LEMTRADA [Suspect]
     Active Substance: ALEMTUZUMAB
     Indication: Product used for unknown indication
     Route: 065
  3. ESCITALOPRAM [Concomitant]
     Active Substance: ESCITALOPRAM OXALATE
     Dates: end: 20211001
  4. COMIRNATY [Concomitant]
     Active Substance: TOZINAMERAN
  5. LEVOTHYROXINE [Concomitant]
     Active Substance: LEVOTHYROXINE
     Dosage: 1-0-0

REACTIONS (7)
  - Breast discomfort [Recovered/Resolved]
  - Nipple pain [Recovered/Resolved]
  - Vaginal haemorrhage [Recovered/Resolved]
  - Oral candidiasis [Unknown]
  - Vulvovaginal mycotic infection [Unknown]
  - Autoimmune thyroiditis [Not Recovered/Not Resolved]
  - COVID-19 [Recovered/Resolved]

NARRATIVE: CASE EVENT DATE: 20210701
